FAERS Safety Report 8013873-0 (Version None)
Quarter: 2011Q4

REPORT INFORMATION
  Report Type: 
  Country: None (occurrence: None)
  Receive Date: 20111229
  Receipt Date: 20111226
  Transmission Date: 20120403
  Serious: Yes (Other)
  Sender: FDA-Public Use
  Company Number: JP-PFIZER INC-2011166171

PATIENT
  Age: 80 Year
  Sex: Female

DRUGS (10)
  1. CRESTOR [Concomitant]
     Indication: HYPERLIPIDAEMIA
     Dosage: 2.5 MG, 2X/DAY
     Route: 048
     Dates: start: 20110603
  2. LYRICA [Suspect]
     Indication: POST HERPETIC NEURALGIA
     Dosage: 75 MG, 2X/DAY
     Route: 048
     Dates: start: 20110627, end: 20110713
  3. AMARYL [Concomitant]
     Indication: DIABETES MELLITUS
     Dosage: 1 MG, 1X/DAY
     Route: 048
     Dates: start: 20110608, end: 20110620
  4. REZALTAS [Concomitant]
     Indication: HYPERTENSION
     Dosage: UNKNOWN DOSE ONCE DAILY
     Route: 048
     Dates: start: 20110721
  5. ADALAT [Concomitant]
     Dosage: 20 MG, 2X/DAY
     Route: 048
     Dates: start: 20110715, end: 20110720
  6. ADALAT [Concomitant]
     Indication: HYPERTENSION
     Dosage: 20 MG, 1X/DAY
     Route: 048
     Dates: start: 20110603, end: 20110714
  7. AMARYL [Concomitant]
     Dosage: 2 MG, 1X/DAY
     Route: 048
     Dates: start: 20110621
  8. LANTUS [Concomitant]
     Indication: DIABETES MELLITUS
     Dosage: 10 UNITS ONCE A DAY
     Route: 058
     Dates: start: 20110603, end: 20110808
  9. ACICLOVIR [Concomitant]
     Indication: HERPES ZOSTER
     Dosage: 250 MG, 3X/DAY
     Route: 041
     Dates: start: 20110627, end: 20110704
  10. MAGMITT [Concomitant]
     Indication: CONSTIPATION
     Dosage: 330 MG, 3X/DAY
     Route: 048
     Dates: start: 20110815

REACTIONS (2)
  - HEADACHE [None]
  - DECREASED ACTIVITY [None]
